FAERS Safety Report 14690863 (Version 3)
Quarter: 2018Q2

REPORT INFORMATION
  Report Type: Spontaneous
  Country: JP (occurrence: JP)
  Receive Date: 20180328
  Receipt Date: 20180529
  Transmission Date: 20180711
  Serious: Yes (Hospitalization, Other)
  Sender: FDA-Public Use
  Company Number: JP-ALLERGAN-1811608US

PATIENT
  Age: 81 Year
  Sex: Female

DRUGS (5)
  1. BOTOX [Suspect]
     Active Substance: ONABOTULINUMTOXINA
     Dosage: 25 UNITS, SINGLE
     Route: 030
     Dates: start: 20180110, end: 20180110
  2. BOTOX [Suspect]
     Active Substance: ONABOTULINUMTOXINA
     Indication: MUSCLE SPASTICITY
     Dosage: 250 UNITS, SINGLE
     Route: 030
     Dates: start: 20161130, end: 20161130
  3. BOTOX [Suspect]
     Active Substance: ONABOTULINUMTOXINA
     Dosage: 50 UNITS, SINGLE
     Route: 030
     Dates: start: 20180110, end: 20180110
  4. BOTOX [Suspect]
     Active Substance: ONABOTULINUMTOXINA
     Dosage: 37.5 UNITS, SINGLE
     Route: 030
     Dates: start: 20180110, end: 20180110
  5. BOTOX [Suspect]
     Active Substance: ONABOTULINUMTOXINA
     Dosage: 37.5 UNITS, SINGLE
     Route: 030
     Dates: start: 20180110, end: 20180110

REACTIONS (4)
  - Femur fracture [Recovering/Resolving]
  - Fall [Recovering/Resolving]
  - Product administered at inappropriate site [Unknown]
  - Asthenia [Unknown]

NARRATIVE: CASE EVENT DATE: 2016
